FAERS Safety Report 10465860 (Version 1)
Quarter: 2014Q3

REPORT INFORMATION
  Report Type: Spontaneous
  Country: BR (occurrence: BR)
  Receive Date: 20140921
  Receipt Date: 20140921
  Transmission Date: 20150326
  Serious: Yes (Hospitalization)
  Sender: FDA-Public Use
  Company Number: BR-BRISTOL-MYERS SQUIBB COMPANY-21399530

PATIENT
  Age: 68 Year
  Sex: Female
  Weight: 90 kg

DRUGS (3)
  1. LASIX [Concomitant]
     Active Substance: FUROSEMIDE
  2. COUMADIN [Suspect]
     Active Substance: WARFARIN SODIUM
  3. CARVEDILOL. [Concomitant]
     Active Substance: CARVEDILOL

REACTIONS (10)
  - Functional gastrointestinal disorder [Unknown]
  - Haemorrhage [Unknown]
  - Hypometabolism [Unknown]
  - Malaise [Unknown]
  - Pneumonia [Unknown]
  - Pruritus [Unknown]
  - Fluid retention [Unknown]
  - Pain [Unknown]
  - Hypersensitivity [Unknown]
  - Eating disorder [Unknown]
